FAERS Safety Report 8215004-0 (Version None)
Quarter: 2012Q1

REPORT INFORMATION
  Report Type: 
  Country: None (occurrence: None)
  Receive Date: 20120316
  Receipt Date: 20120302
  Transmission Date: 20120608
  Serious: Yes (Other)
  Sender: FDA-Public Use
  Company Number: AU-MYLANLABS-2012S1005008

PATIENT
  Age: 24 Year
  Sex: Male

DRUGS (3)
  1. ESCITALOPRAM [Interacting]
     Indication: ANXIETY
     Dosage: 10 MG/DAY
     Route: 065
  2. SERTRALINE HYDROCHLORIDE [Suspect]
     Indication: ANXIETY
     Route: 065
  3. HYPERICUM [Interacting]
     Indication: ANXIETY
     Dosage: 900 MG/DAY
     Route: 065

REACTIONS (3)
  - DRUG INTERACTION [None]
  - AKATHISIA [None]
  - SUICIDE ATTEMPT [None]
